FAERS Safety Report 4608381-0 (Version None)
Quarter: 2005Q1

REPORT INFORMATION
  Report Type: 
  Country: None (occurrence: None)
  Receive Date: 20050315
  Receipt Date: 20050302
  Transmission Date: 20050727
  Serious: Yes (Other)
  Sender: FDA-Public Use
  Company Number: GB-JNJFOC-20050300722

PATIENT
  Sex: Female
  Weight: 47 kg

DRUGS (10)
  1. REMICADE [Suspect]
     Indication: RHEUMATOID ARTHRITIS
     Route: 042
  2. PREDNISOLONE [Concomitant]
  3. METHOTREXATE [Concomitant]
  4. FOLATE [Concomitant]
  5. CALCICHEW [Concomitant]
  6. ALENDRONATE SODIUM [Concomitant]
  7. CO-DYDRAMOL [Concomitant]
  8. CO-DYDRAMOL [Concomitant]
  9. SENNA [Concomitant]
  10. LACTULOSE [Concomitant]

REACTIONS (8)
  - BONE MARROW TUMOUR CELL INFILTRATION [None]
  - EXTRANODAL MARGINAL ZONE B-CELL LYMPHOMA (MALT TYPE) [None]
  - HAEMOGLOBIN DECREASED [None]
  - LYMPHOCYTOSIS [None]
  - LYMPHOPROLIFERATIVE DISORDER [None]
  - MARROW HYPERPLASIA [None]
  - TENDON DISORDER [None]
  - WHITE BLOOD CELL COUNT INCREASED [None]
